FAERS Safety Report 6446039-6 (Version None)
Quarter: 2009Q4

REPORT INFORMATION
  Report Type: 
  Country: None (occurrence: None)
  Receive Date: 20091119
  Receipt Date: 20090916
  Transmission Date: 20100525
  Serious: No
  Sender: FDA-Public Use
  Company Number: A0808497A

PATIENT
  Sex: Male

DRUGS (1)
  1. WELLBUTRIN SR [Suspect]
     Dosage: 100MG PER DAY

REACTIONS (3)
  - ADVERSE EVENT [None]
  - HEADACHE [None]
  - MUSCULAR WEAKNESS [None]
